FAERS Safety Report 9472164 (Version 1)
Quarter: 2013Q3

REPORT INFORMATION
  Report Type: Spontaneous
  Country: US (occurrence: None)
  Receive Date: 20130821
  Receipt Date: 20130821
  Transmission Date: 20140515
  Serious: Yes (Other)
  Sender: FDA-Public Use
  Company Number: None

PATIENT
  Sex: Female
  Weight: 112.95 kg

DRUGS (1)
  1. DIOVAN HCT [Suspect]
     Dosage: 1 TABLET DAILY PO
     Route: 048
     Dates: start: 201305, end: 20130612

REACTIONS (2)
  - Rash [None]
  - Product substitution issue [None]
